FAERS Safety Report 12108143 (Version 1)
Quarter: 2016Q1

REPORT INFORMATION
  Report Type: Other
  Country: US (occurrence: US)
  Receive Date: 20160224
  Receipt Date: 20160224
  Transmission Date: 20160526
  Serious: Yes (Hospitalization)
  Sender: FDA-Public Use
  Company Number: US-ACORDA-ACO_115086_2015

PATIENT
  Age: 49 Year
  Sex: Male

DRUGS (9)
  1. MARINOL [Concomitant]
     Active Substance: DRONABINOL
     Dosage: UNK
  2. COPAXONE [Concomitant]
     Active Substance: GLATIRAMER ACETATE
     Dosage: 40 MG, 3X/WK
  3. TRAZODONE HYDROCHLORIDE. [Concomitant]
     Active Substance: TRAZODONE HYDROCHLORIDE
     Dosage: UNK, PRN
  4. SOMA [Concomitant]
     Active Substance: CARISOPRODOL
     Dosage: UNK
  5. AMPYRA [Suspect]
     Active Substance: DALFAMPRIDINE
     Indication: MULTIPLE SCLEROSIS
     Dosage: 10 MG, BID
     Route: 048
     Dates: start: 201507, end: 201508
  6. OTHER THERAPEUTIC PRODUCTS [Concomitant]
     Active Substance: UNSPECIFIED INGREDIENT
     Dosage: UNK
  7. AMPYRA [Suspect]
     Active Substance: DALFAMPRIDINE
     Indication: COGNITIVE DISORDER
  8. DEPAKOTE [Concomitant]
     Active Substance: DIVALPROEX SODIUM
     Dosage: UNK
  9. LITHIUM. [Concomitant]
     Active Substance: LITHIUM
     Dosage: UNK

REACTIONS (6)
  - Limb discomfort [Unknown]
  - Confusional state [Unknown]
  - Off label use [Unknown]
  - Condition aggravated [Not Recovered/Not Resolved]
  - Atrial fibrillation [Unknown]
  - Pain in extremity [Not Recovered/Not Resolved]

NARRATIVE: CASE EVENT DATE: 2015
